FAERS Safety Report 9306768 (Version 2)
Quarter: 2013Q3

REPORT INFORMATION
  Report Type: Report from Study
  Country: US (occurrence: US)
  Receive Date: 20130523
  Receipt Date: 20130704
  Transmission Date: 20140515
  Serious: Yes (Disabling)
  Sender: FDA-Public Use
  Company Number: US-ASTRAZENECA-2013SE30430

PATIENT
  Age: 66 Year
  Sex: Male
  Weight: 123.4 kg

DRUGS (14)
  1. BRILINTA [Suspect]
     Indication: STENT PLACEMENT
     Route: 048
     Dates: start: 20130426
  2. METOPROLOL [Suspect]
     Route: 065
  3. CYCLOBENZAPRINE [Concomitant]
  4. PREDNISONE [Concomitant]
  5. DEXILANT [Concomitant]
  6. EZ SPACER [Concomitant]
  7. FLUCATASONE [Concomitant]
  8. HYDROCODONE [Concomitant]
  9. ISOSORBIDE [Concomitant]
  10. LOTREL [Concomitant]
  11. NITROSTAT [Concomitant]
  12. PROAIR [Concomitant]
     Dosage: 108
  13. TAMULOSIN [Concomitant]
  14. PLAVIX [Concomitant]

REACTIONS (4)
  - Abdominal pain [Unknown]
  - Gingival bleeding [Unknown]
  - Abdominal discomfort [Unknown]
  - Drug hypersensitivity [Unknown]
